FAERS Safety Report 14789358 (Version 3)
Quarter: 2018Q4

REPORT INFORMATION
  Report Type: Report from Study
  Country: DE (occurrence: DE)
  Receive Date: 20180423
  Receipt Date: 20181222
  Transmission Date: 20190204
  Serious: Yes (Other)
  Sender: FDA-Public Use
  Company Number: DE-ROCHE-1806080

PATIENT
  Age: 62 Year
  Sex: Female
  Weight: 88 kg

DRUGS (8)
  1. CISPLATIN. [Suspect]
     Active Substance: CISPLATIN
     Route: 042
     Dates: start: 20130507, end: 20130507
  2. PACLITAXEL. [Suspect]
     Active Substance: PACLITAXEL
     Indication: OVARIAN CANCER
     Dosage: ON 01/AUG/2013- 351 MG
     Route: 042
     Dates: start: 20130215, end: 20130801
  3. BEVACIZUMAB. [Suspect]
     Active Substance: BEVACIZUMAB
     Route: 042
     Dates: start: 20130507, end: 20130507
  4. PACLITAXEL. [Suspect]
     Active Substance: PACLITAXEL
     Route: 042
     Dates: start: 20130507, end: 20130507
  5. DEXAMETHASON [Concomitant]
     Active Substance: DEXAMETHASONE
     Route: 042
     Dates: start: 20130215, end: 20130801
  6. BEVACIZUMAB. [Suspect]
     Active Substance: BEVACIZUMAB
     Indication: OVARIAN CANCER
     Route: 042
     Dates: start: 20130308, end: 20140206
  7. CISPLATIN. [Suspect]
     Active Substance: CISPLATIN
     Indication: OVARIAN CANCER
     Route: 042
     Dates: start: 20130328, end: 20130328
  8. DEXAMETHASON [Concomitant]
     Active Substance: DEXAMETHASONE
     Route: 048
     Dates: start: 20130215, end: 20130806

REACTIONS (11)
  - Leukopenia [Recovered/Resolved]
  - Paraesthesia [Not Recovered/Not Resolved]
  - Anaphylactic reaction [Recovered/Resolved]
  - Ostectomy [Not Recovered/Not Resolved]
  - Impaired healing [Not Recovered/Not Resolved]
  - Cystitis [Recovered/Resolved]
  - Nausea [Recovered/Resolved]
  - Stomatitis [Not Recovered/Not Resolved]
  - Cystitis [Recovered/Resolved]
  - Diarrhoea [Recovered/Resolved]
  - Toothache [Recovered/Resolved]

NARRATIVE: CASE EVENT DATE: 20130308
